FAERS Safety Report 8439449 (Version 8)
Quarter: 2013Q1

REPORT INFORMATION
  Report Type: Spontaneous
  Country: CA (occurrence: CA)
  Receive Date: 20120302
  Receipt Date: 20130322
  Transmission Date: 20140127
  Serious: Yes (Hospitalization, Other)
  Sender: FDA-Public Use
  Company Number: PHHY2012CA017473

PATIENT
  Age: 25 Year
  Sex: Male

DRUGS (8)
  1. GILENYA [Suspect]
     Indication: PROGRESSIVE RELAPSING MULTIPLE SCLEROSIS
     Dosage: 0.5 MG, QD
     Route: 048
     Dates: start: 20120217
  2. DEXAMETHASONE SANDOZ [Suspect]
     Dosage: 1 MG, UNK
  3. SERAX [Concomitant]
  4. FLOMAX [Concomitant]
     Dosage: 0.4 MG, UNK
  5. LIORESAL [Concomitant]
     Dosage: 10 MG, TID
     Route: 048
  6. HEPARINE [Concomitant]
     Dosage: 5000 U, BID
     Route: 058
  7. GRAVOL [Concomitant]
     Dosage: 50 MG, Q6H
  8. PANTOLOC [Concomitant]
     Dosage: 40 MG, UNK

REACTIONS (21)
  - Substance-induced psychotic disorder [Recovered/Resolved]
  - Paranoia [Recovered/Resolved]
  - Delusion [Recovered/Resolved]
  - Psychiatric symptom [Recovered/Resolved]
  - Agitation [Recovered/Resolved]
  - Hostility [Recovered/Resolved]
  - Irritability [Recovered/Resolved]
  - Aggression [Recovered/Resolved]
  - Hallucination [Recovered/Resolved]
  - Depressed mood [Recovering/Resolving]
  - Mood altered [Recovering/Resolving]
  - Urinary retention [Recovering/Resolving]
  - Multiple sclerosis relapse [Recovered/Resolved]
  - Dysarthria [Recovered/Resolved]
  - Facial paresis [Recovered/Resolved]
  - Paraesthesia [Recovered/Resolved]
  - Hypoaesthesia [Recovering/Resolving]
  - Acne [Recovering/Resolving]
  - Amnesia [Recovering/Resolving]
  - Rash generalised [Recovering/Resolving]
  - Rash [Recovered/Resolved]
